FAERS Safety Report 10217315 (Version 1)
Quarter: 2014Q2

REPORT INFORMATION
  Report Type: Report from Study
  Country: US (occurrence: US)
  Receive Date: 20140604
  Receipt Date: 20140604
  Transmission Date: 20141212
  Serious: Yes (Death, Life-Threatening, Hospitalization, Other)
  Sender: FDA-Public Use
  Company Number: US-SA-2014SA068801

PATIENT
  Age: 81 Year
  Sex: Female
  Weight: 65.5 kg

DRUGS (5)
  1. ELOXATIN [Suspect]
     Indication: ADENOCARCINOMA OF COLON
     Dosage: OVER 2 HOURS ON DAY 1
     Route: 042
     Dates: start: 20131113, end: 20140121
  2. BLINDED THERAPY [Suspect]
     Indication: ADENOCARCINOMA OF COLON
     Route: 048
     Dates: start: 20131113, end: 20140129
  3. FLUOROURACIL [Suspect]
     Indication: ADENOCARCINOMA OF COLON
     Dosage: 400 MG/M2 IVP ON DAY 1 FOLLOWED BY 2400 MG/M2 IV OVER 46-48 HOURS ON DAY 1
     Route: 042
     Dates: start: 20131113, end: 20140123
  4. PEGFILGRASTIM [Concomitant]
  5. LEUCOVORIN CALCIUM [Concomitant]
     Dosage: 400MG/M2 OVER 2 HOURS ON DAY 1
     Route: 042
     Dates: start: 20131113, end: 20140121

REACTIONS (9)
  - Gastric haemorrhage [Fatal]
  - Syncope [Recovered/Resolved]
  - Hyponatraemia [Recovered/Resolved]
  - Neutrophil count decreased [Recovered/Resolved]
  - Nausea [Recovered/Resolved]
  - Dehydration [Recovered/Resolved]
  - Diarrhoea [Unknown]
  - Anaemia [Unknown]
  - Platelet count decreased [Unknown]
